FAERS Safety Report 4838564-6 (Version None)
Quarter: 2005Q4

REPORT INFORMATION
  Report Type: 
  Country: None (occurrence: None)
  Receive Date: 20051123
  Receipt Date: 20051110
  Transmission Date: 20060501
  Serious: Yes (Hospitalization)
  Sender: FDA-Public Use
  Company Number: FABR-11221

PATIENT
  Age: 41 Year
  Sex: Female
  Weight: 97 kg

DRUGS (5)
  1. FABRAZYME [Suspect]
     Indication: FABRY'S DISEASE
     Dosage: 105 MG Q2WKS IV
     Route: 042
     Dates: start: 20031112
  2. COUMADIN [Concomitant]
  3. GABAPENTIN [Concomitant]
  4. ALTACE [Concomitant]
  5. ASPIRIN [Concomitant]

REACTIONS (1)
  - BRAIN STEM INFARCTION [None]
